FAERS Safety Report 10187373 (Version 1)
Quarter: 2014Q2

REPORT INFORMATION
  Report Type: Spontaneous
  Country: FR (occurrence: FR)
  Receive Date: 20140522
  Receipt Date: 20140522
  Transmission Date: 20141212
  Serious: Yes (Hospitalization)
  Sender: FDA-Public Use
  Company Number: FR-SA-2014SA064692

PATIENT
  Age: 83 Year
  Sex: Male

DRUGS (10)
  1. CEFIXIME [Suspect]
     Indication: PRODUCT USED FOR UNKNOWN INDICATION
     Route: 048
     Dates: start: 20140303
  2. TRIATEC [Interacting]
     Indication: PRODUCT USED FOR UNKNOWN INDICATION
     Route: 048
  3. LASILIX [Interacting]
     Indication: PRODUCT USED FOR UNKNOWN INDICATION
     Dosage: STRENGTH: 40 MG
     Route: 048
  4. ADENURIC [Suspect]
     Indication: GOUT
     Route: 048
     Dates: start: 20140124, end: 201404
  5. COLCHICINE OPOCALCIUM [Interacting]
     Indication: GOUT
     Dosage: STRENGTH 1 MG
     Route: 048
     Dates: start: 2014
  6. KETUM [Interacting]
     Indication: GOUT
     Route: 065
  7. LEVOTHYROXINE [Concomitant]
  8. TAHOR [Concomitant]
  9. KARDEGIC [Concomitant]
  10. INEXIUM [Concomitant]

REACTIONS (3)
  - Renal failure acute [Recovered/Resolved]
  - Drug interaction [Unknown]
  - Hyperkalaemia [Recovered/Resolved]
